FAERS Safety Report 9202803 (Version 1)
Quarter: 2013Q2

REPORT INFORMATION
  Report Type: Spontaneous
  Country: US (occurrence: US)
  Receive Date: 20130401
  Receipt Date: 20130401
  Transmission Date: 20140414
  Serious: No
  Sender: FDA-Public Use
  Company Number: US-009507513-1303USA013453

PATIENT
  Age: 87 Year
  Sex: Male

DRUGS (1)
  1. JANUMET XR [Suspect]
     Dosage: 100/1000 MG, QD
     Route: 048
     Dates: start: 20130318, end: 20130323

REACTIONS (2)
  - Rash [Recovered/Resolved]
  - Malaise [Recovered/Resolved]
